FAERS Safety Report 9893971 (Version 1)
Quarter: 2014Q1

REPORT INFORMATION
  Report Type: Spontaneous
  Country: US (occurrence: US)
  Receive Date: 20140213
  Receipt Date: 20140213
  Transmission Date: 20141002
  Serious: No
  Sender: FDA-Public Use
  Company Number: US-PFIZER INC-2014037241

PATIENT
  Age: 54 Year
  Sex: Female
  Weight: 72.5 kg

DRUGS (3)
  1. LEVOTHYROXINE SODIUM [Suspect]
     Indication: THYROID DISORDER
     Dosage: 125 UG, 1X/DAY
     Dates: start: 2013
  2. OXYCODONE [Concomitant]
     Indication: PAIN
     Dosage: 80 MG, 1X/DAY
  3. NORCO [Concomitant]
     Indication: PAIN
     Dosage: 10/325MG, 6X/DAY

REACTIONS (4)
  - Drug ineffective [Unknown]
  - Alopecia [Unknown]
  - Cardiac disorder [Unknown]
  - Weight increased [Unknown]
